FAERS Safety Report 8309979 (Version 4)
Quarter: 2013Q4

REPORT INFORMATION
  Report Type: Spontaneous
  Country: US (occurrence: US)
  Receive Date: 20111223
  Receipt Date: 20131108
  Transmission Date: 20140711
  Serious: Yes (Hospitalization, Other)
  Sender: FDA-Public Use
  Company Number: US-ROXANE LABORATORIES, INC.-2011-RO-01832RO

PATIENT
  Age: 73 Year
  Sex: Male
  Weight: 73 kg

DRUGS (3)
  1. PREDNISONE [Suspect]
     Indication: PLASMA CELL MYELOMA
     Route: 048
     Dates: start: 20110418
  2. VELCADE [Suspect]
     Indication: PLASMA CELL MYELOMA
     Route: 042
     Dates: start: 20110418
  3. MELPHALAN [Suspect]
     Indication: PLASMA CELL MYELOMA
     Route: 048
     Dates: start: 20110418

REACTIONS (19)
  - Asthenia [Unknown]
  - Dyspnoea [Unknown]
  - Bacterial infection [Unknown]
  - Non-cardiac chest pain [Unknown]
  - Malaise [Unknown]
  - Chills [Unknown]
  - Dysgeusia [Unknown]
  - Inguinal hernia [Unknown]
  - Intestinal obstruction [Unknown]
  - Pyrexia [Unknown]
  - Pneumonia [Unknown]
  - Fluid overload [Unknown]
  - Mass [Unknown]
  - Obstruction [Unknown]
  - Rectal haemorrhage [Recovered/Resolved]
  - Plasma cell myeloma [Unknown]
  - Renal failure acute [Unknown]
  - Cellulitis [Unknown]
  - Pneumonia [Unknown]
